FAERS Safety Report 8348573-0 (Version None)
Quarter: 2012Q2

REPORT INFORMATION
  Report Type: 
  Country: None (occurrence: None)
  Receive Date: 20120510
  Receipt Date: 20120504
  Transmission Date: 20120825
  Serious: Yes (Death, Hospitalization, Other)
  Sender: FDA-Public Use
  Company Number: US-AMGEN-USASP2012023593

PATIENT
  Age: 89 Year
  Sex: Male
  Weight: 55.601 kg

DRUGS (3)
  1. ARANESP [Concomitant]
     Dosage: UNK
     Dates: start: 20110822, end: 20110822
  2. NEULASTA [Suspect]
     Indication: PRODUCT USED FOR UNKNOWN INDICATION
     Dosage: UNK
     Dates: start: 20110818, end: 20110818
  3. DACOGEN [Concomitant]
     Indication: MYELODYSPLASTIC SYNDROME
     Dosage: 30 MG, QMO
     Route: 042
     Dates: start: 20110712, end: 20110920

REACTIONS (14)
  - HYPOVITAMINOSIS [None]
  - SINUSITIS [None]
  - BACK PAIN [None]
  - RADICULOPATHY [None]
  - DEATH [None]
  - TRACHEOBRONCHITIS [None]
  - PLEURAL EFFUSION [None]
  - HIATUS HERNIA [None]
  - GASTROOESOPHAGEAL REFLUX DISEASE [None]
  - SPINAL COMPRESSION FRACTURE [None]
  - PNEUMONIA ASPIRATION [None]
  - MALNUTRITION [None]
  - CEREBROVASCULAR ACCIDENT [None]
  - DEPRESSION [None]
